FAERS Safety Report 12378750 (Version 2)
Quarter: 2016Q3

REPORT INFORMATION
  Report Type: Spontaneous
  Country: GB (occurrence: GB)
  Receive Date: 20160517
  Receipt Date: 20160707
  Transmission Date: 20161109
  Serious: Yes (Death)
  Sender: FDA-Public Use
  Company Number: GB-B.I. PHARMACEUTICALS,INC./RIDGEFIELD-2016-BI-31358UK

PATIENT
  Sex: Male
  Weight: 59.4 kg

DRUGS (5)
  1. CARBOCISTEINE [Concomitant]
     Active Substance: CARBOCYSTEINE
     Indication: INCREASED VISCOSITY OF BRONCHIAL SECRETION
     Dosage: 2250 MG
     Route: 048
  2. LACTULOSE. [Concomitant]
     Active Substance: LACTULOSE
     Indication: CONSTIPATION
     Dosage: 15 ML
     Route: 048
     Dates: start: 20160304
  3. CODEINE LINCTUS [Concomitant]
     Active Substance: CHLOROFORM\CODEINE PHOSPHATE\DRIMIA MARITIMA BULB
     Indication: ANTITUSSIVE THERAPY
     Dosage: 5 ML
     Route: 048
  4. OFEV [Suspect]
     Active Substance: NINTEDANIB
     Indication: IDIOPATHIC PULMONARY FIBROSIS
     Dosage: 300 MG
     Route: 048
     Dates: start: 20150506
  5. PREDNISOLONE. [Concomitant]
     Active Substance: PREDNISOLONE
     Indication: PRODUCT USED FOR UNKNOWN INDICATION
     Dosage: 2 MG
     Route: 048

REACTIONS (3)
  - Idiopathic pulmonary fibrosis [Fatal]
  - Asthenia [Fatal]
  - Pneumonia [Fatal]
